FAERS Safety Report 5397915-7 (Version None)
Quarter: 2007Q3

REPORT INFORMATION
  Report Type: 
  Country: None (occurrence: None)
  Receive Date: 20070726
  Receipt Date: 20070523
  Transmission Date: 20080115
  Serious: Yes (Disabling)
  Sender: FDA-Public Use
  Company Number: IT-ASTRAZENECA-2007SE02906

PATIENT
  Age: 19814 Day
  Sex: Female

DRUGS (2)
  1. ARIMIDEX [Suspect]
     Indication: BREAST NEOPLASM
     Route: 048
     Dates: start: 20061101, end: 20070519
  2. TICLOPIDINE HCL [Concomitant]
     Route: 048

REACTIONS (3)
  - DIZZINESS [None]
  - NYSTAGMUS [None]
  - TRANSIENT ISCHAEMIC ATTACK [None]
